FAERS Safety Report 7128055-4 (Version None)
Quarter: 2010Q4

REPORT INFORMATION
  Report Type: 
  Country: None (occurrence: None)
  Receive Date: 20101112
  Receipt Date: 20101028
  Transmission Date: 20110411
  Serious: Yes (Hospitalization, Other)
  Sender: FDA-Public Use
  Company Number: 2010126648

PATIENT
  Age: 70 Year
  Sex: Female
  Weight: 110 kg

DRUGS (8)
  1. FRAGMIN [Suspect]
     Indication: DEEP VEIN THROMBOSIS
     Dosage: 12500 IU, 2X/DAY, SUBCUTANEOUS
     Route: 058
     Dates: start: 20100630
  2. FRAGMIN [Suspect]
     Indication: PULMONARY EMBOLISM
     Dosage: 12500 IU, 2X/DAY, SUBCUTANEOUS
     Route: 058
     Dates: start: 20100630
  3. FRAGMIN [Suspect]
     Indication: THROMBOSIS PROPHYLAXIS
     Dosage: 12500 IU, 2X/DAY, SUBCUTANEOUS
     Route: 058
     Dates: start: 20100630
  4. HEPARIN SODIUM [Concomitant]
  5. COLACE (DOCUSATE SODIUM) [Concomitant]
  6. METOPROLOL SUCCINATE [Concomitant]
  7. LEUCOVRIN (FOLINIC ACID) [Concomitant]
  8. FLUOROURACIL [Concomitant]

REACTIONS (5)
  - DERMATITIS BULLOUS [None]
  - INJECTION SITE NODULE [None]
  - INJECTION SITE PAIN [None]
  - OVERDOSE [None]
  - PULMONARY INFARCTION [None]
